FAERS Safety Report 15498492 (Version 1)
Quarter: 2018Q4

REPORT INFORMATION
  Report Type: Spontaneous
  Country: US (occurrence: US)
  Receive Date: 20181005
  Receipt Date: 20181005
  Transmission Date: 20190205
  Serious: No
  Sender: FDA-Public Use
  Company Number: None

PATIENT
  Age: 44 Year
  Sex: Female

DRUGS (1)
  1. ACTHAR [Suspect]
     Active Substance: CORTICOTROPIN
     Dates: start: 201801, end: 20180924

REACTIONS (2)
  - Heart rate increased [None]
  - Peripheral swelling [None]

NARRATIVE: CASE EVENT DATE: 20181004
